FAERS Safety Report 7760301-6 (Version None)
Quarter: 2011Q3

REPORT INFORMATION
  Report Type: 
  Country: None (occurrence: None)
  Receive Date: 20110919
  Receipt Date: 20110912
  Transmission Date: 20111222
  Serious: Yes (Other)
  Sender: FDA-Public Use
  Company Number: US-PFIZER INC-2011214669

PATIENT
  Sex: Female
  Weight: 55.782 kg

DRUGS (2)
  1. PRISTIQ [Suspect]
     Indication: ANXIETY
     Dosage: UNK
     Dates: start: 20110911, end: 20110911
  2. PRISTIQ [Suspect]
     Indication: DEPRESSION
     Dosage: UNK
     Dates: start: 20100101, end: 20110909

REACTIONS (1)
  - WITHDRAWAL SYNDROME [None]
